FAERS Safety Report 14974538 (Version 1)
Quarter: 2018Q2

REPORT INFORMATION
  Report Type: Other
  Country: IL (occurrence: IL)
  Receive Date: 20180605
  Receipt Date: 20180605
  Transmission Date: 20180711
  Serious: Yes (Hospitalization)
  Sender: FDA-Public Use
  Company Number: IL-CELLTRION INC.-2018IL020128

PATIENT

DRUGS (1)
  1. REMSIMA [Suspect]
     Active Substance: INFLIXIMAB
     Indication: PRODUCT USED FOR UNKNOWN INDICATION
     Dosage: 300 MG, AT A RATE OF 150 MG/H
     Route: 042
     Dates: start: 20180527, end: 20180527

REACTIONS (3)
  - Hypoaesthesia [Unknown]
  - Maternal exposure during pregnancy [Unknown]
  - Dyspnoea [Unknown]

NARRATIVE: CASE EVENT DATE: 20180527
